FAERS Safety Report 18545409 (Version 1)
Quarter: 2020Q4

REPORT INFORMATION
  Report Type: Spontaneous
  Country: CN (occurrence: CN)
  Receive Date: 20201125
  Receipt Date: 20201125
  Transmission Date: 20210114
  Serious: Yes (Hospitalization, Other)
  Sender: FDA-Public Use
  Company Number: CN-PFIZER INC-2020462385

PATIENT
  Age: 33 Year
  Sex: Female

DRUGS (6)
  1. MISOPROSTOL. [Suspect]
     Active Substance: MISOPROSTOL
     Dosage: 400 UG
     Route: 048
  2. MIFEPRISTONE [Concomitant]
     Active Substance: MIFEPRISTONE
     Dosage: 75 MG, DAILY(50MG IN THE MORNING AND 25MG IN THE EVENING)
     Route: 048
  3. ORNIDAZOLE [Concomitant]
     Active Substance: ORNIDAZOLE
     Indication: ANTI-INFECTIVE THERAPY
     Route: 041
  4. MISOPROSTOL. [Suspect]
     Active Substance: MISOPROSTOL
     Indication: INDUCED LABOUR
     Dosage: 600 UG, AS NEEDED(ADD ADDITIONAL ONCE EVERY 4 H FOR A TOTAL OF 2 TIMES)
     Route: 048
  5. MIFEPRISTONE [Concomitant]
     Active Substance: MIFEPRISTONE
     Dosage: 150 MG
     Route: 048
  6. CEFOPERAZONE/SULBACTAM [Concomitant]
     Active Substance: CEFOPERAZONE\SULBACTAM
     Indication: ANTI-INFECTIVE THERAPY
     Route: 041

REACTIONS (4)
  - Prescribed overdose [Unknown]
  - Septic shock [Recovered/Resolved]
  - Drug ineffective for unapproved indication [Unknown]
  - Off label use [Unknown]
